FAERS Safety Report 15435978 (Version 1)
Quarter: 2018Q3

REPORT INFORMATION
  Report Type: Spontaneous
  Country: KR (occurrence: KR)
  Receive Date: 20180927
  Receipt Date: 20180927
  Transmission Date: 20181010
  Serious: Yes (Death, Hospitalization)
  Sender: FDA-Public Use
  Company Number: KR-BAYER-2018-173933

PATIENT
  Age: 73 Year
  Sex: Male

DRUGS (9)
  1. CLOPIDOGREL BISULFATE. [Concomitant]
     Active Substance: CLOPIDOGREL BISULFATE
  2. CONCOR [Concomitant]
     Active Substance: BISOPROLOL FUMARATE
  3. LEVOSULPIRIDE [Concomitant]
     Active Substance: LEVOSULPIRIDE
  4. AZACITIDINE. [Concomitant]
     Active Substance: AZACITIDINE
  5. ASPIRIN PROTECT 100 MG [Suspect]
     Active Substance: ASPIRIN
     Indication: CEREBROVASCULAR ACCIDENT PROPHYLAXIS
     Dosage: UNK
     Route: 048
  6. KALIMATE [Concomitant]
     Active Substance: CALCIUM POLYSTYRENE SULFONATE
  7. LIPITOR [Concomitant]
     Active Substance: ATORVASTATIN CALCIUM
  8. TORASEMID [Concomitant]
     Active Substance: TORSEMIDE
  9. OLMETEC [Concomitant]
     Active Substance: OLMESARTAN MEDOXOMIL

REACTIONS (16)
  - Haemorrhage [Fatal]
  - Cardiomegaly [Fatal]
  - Acute myocardial infarction [Fatal]
  - Labelled drug-drug interaction medication error [Fatal]
  - Haematochezia [Fatal]
  - Myocardial ischaemia [Fatal]
  - Palpitations [Fatal]
  - Pyrexia [Fatal]
  - Left ventricular dysfunction [Fatal]
  - Gastritis [None]
  - Acute respiratory failure [Fatal]
  - Pleural effusion [Fatal]
  - Sepsis [Fatal]
  - Ejection fraction decreased [Fatal]
  - Haemoglobin abnormal [Fatal]
  - Loss of consciousness [Fatal]

NARRATIVE: CASE EVENT DATE: 20141209
